FAERS Safety Report 21445425 (Version 1)
Quarter: 2022Q4

REPORT INFORMATION
  Report Type: Report from Study
  Country: US (occurrence: US)
  Receive Date: 20221012
  Receipt Date: 20221012
  Transmission Date: 20230112
  Serious: No
  Sender: FDA-Public Use
  Company Number: US-ABBVIE-4151618

PATIENT
  Sex: Female

DRUGS (3)
  1. SKYRIZI [Suspect]
     Active Substance: RISANKIZUMAB-RZAA
     Indication: Psoriasis
     Dosage: ONE IN ONCE, WEEK 0
     Route: 058
     Dates: start: 20220801, end: 20220801
  2. SKYRIZI [Suspect]
     Active Substance: RISANKIZUMAB-RZAA
     Dosage: ONE IN ONCE, WEEK 4
     Route: 058
     Dates: start: 20220829, end: 20220829
  3. SKYRIZI [Suspect]
     Active Substance: RISANKIZUMAB-RZAA
     Dosage: FORM STRENGTH 150 MILLIGRAM
     Route: 058
     Dates: start: 2022

REACTIONS (2)
  - Psoriasis [Unknown]
  - Erythema [Recovered/Resolved]
